FAERS Safety Report 7946542-3 (Version None)
Quarter: 2011Q4

REPORT INFORMATION
  Report Type: 
  Country: None (occurrence: None)
  Receive Date: 20111129
  Receipt Date: 20111117
  Transmission Date: 20120403
  Serious: Yes (Hospitalization, Other)
  Sender: FDA-Public Use
  Company Number: ES-PFIZER INC-2011289755

PATIENT
  Age: 78 Year
  Sex: Male

DRUGS (11)
  1. ATORVASTATIN CALCIUM [Interacting]
     Indication: HYPERLIPIDAEMIA
     Dosage: 40 MG, DAILY
     Route: 048
     Dates: end: 20110604
  2. ACETYLSALICYLIC ACID SRT [Interacting]
     Indication: PRODUCT USED FOR UNKNOWN INDICATION
     Dosage: 150 MG, DAILY
     Route: 048
     Dates: start: 20080801, end: 20110604
  3. INSULIN MIXTARD [Concomitant]
  4. HYDRALAZINE [Concomitant]
  5. TAMSULOSIN HYDROCHLORIDE [Concomitant]
  6. CLOPIDOGREL [Interacting]
     Indication: PRODUCT USED FOR UNKNOWN INDICATION
     Dosage: 75 MG, DAILY
     Route: 048
     Dates: start: 20080801, end: 20110604
  7. RANITIDINE [Concomitant]
  8. AMIODARONE HCL [Suspect]
     Indication: PRODUCT USED FOR UNKNOWN INDICATION
     Dosage: 200 MG, DAILY
     Route: 048
     Dates: start: 20101101, end: 20110604
  9. SINTROM [Interacting]
     Indication: PRODUCT USED FOR UNKNOWN INDICATION
     Dosage: UNK DAILY
     Route: 048
     Dates: end: 20110604
  10. ISOSORBIDE MONONITRATE [Concomitant]
     Dosage: UNK
  11. BISOPROLOL [Concomitant]
     Dosage: UNK
     Dates: end: 20110604

REACTIONS (2)
  - DRUG INTERACTION [None]
  - CEREBRAL HAEMATOMA [None]
